FAERS Safety Report 13965614 (Version 1)
Quarter: 2017Q3

REPORT INFORMATION
  Report Type: Spontaneous
  Country: TW (occurrence: TW)
  Receive Date: 20170913
  Receipt Date: 20170913
  Transmission Date: 20171128
  Serious: Yes (Hospitalization)
  Sender: FDA-Public Use
  Company Number: TW-PFIZER INC-2017389457

PATIENT
  Age: 61 Year
  Sex: Female
  Weight: 53 kg

DRUGS (2)
  1. CELEBREX [Suspect]
     Active Substance: CELECOXIB
     Indication: ARTHRITIS
     Dosage: 200 MG, SINGLE
     Route: 048
     Dates: start: 201707, end: 201707
  2. CELEBREX [Suspect]
     Active Substance: CELECOXIB
     Dosage: 200 MG, SINGLE
     Route: 048
     Dates: start: 20170806, end: 20170806

REACTIONS (6)
  - Nasopharyngitis [Recovered/Resolved]
  - Discomfort [Recovered/Resolved]
  - Discomfort [Unknown]
  - Pleural effusion [Recovered/Resolved]
  - Pyrexia [Recovered/Resolved]
  - Cough [Not Recovered/Not Resolved]

NARRATIVE: CASE EVENT DATE: 2017
